FAERS Safety Report 18010255 (Version 1)
Quarter: 2020Q3

REPORT INFORMATION
  Report Type: Report from Study
  Country: IT (occurrence: IT)
  Receive Date: 20200710
  Receipt Date: 20200710
  Transmission Date: 20201103
  Serious: Yes (Hospitalization)
  Sender: FDA-Public Use
  Company Number: IT-MYLANLABS-2020M1061969

PATIENT
  Age: 89 Year
  Sex: Female

DRUGS (9)
  1. RAMIPRIL. [Suspect]
     Active Substance: RAMIPRIL
     Indication: HYPERTENSION
     Dosage: 2.5 MILLIGRAM, QD
     Dates: start: 20200101, end: 20200509
  2. LASIX [Suspect]
     Active Substance: FUROSEMIDE
     Indication: HYPERTENSION
     Dosage: 3 DOSAGE FORM, QD
     Dates: start: 20200101, end: 20200509
  3. TRITTICO [Concomitant]
     Active Substance: TRAZODONE HYDROCHLORIDE
     Dosage: 10 GTT DROPS/(DROP (1/12 MILLILITRE)
  4. FOLIC ACID. [Concomitant]
     Active Substance: FOLIC ACID
     Dosage: 5 MILLIGRAM
  5. CIPRALEX [Concomitant]
     Active Substance: ESCITALOPRAM OXALATE
     Dosage: 10 GTT DROPS/(DROP (1/12 MILLILITRE)
  6. KANRENOL [Concomitant]
     Active Substance: CANRENOATE POTASSIUM
     Dosage: 25 MILLIGRAM
  7. CARDIRENE [Suspect]
     Active Substance: ASPIRIN DL-LYSINE
     Indication: THROMBOSIS PROPHYLAXIS
     Dosage: 1 DOSAGE FORM, QD
     Dates: start: 20200101, end: 20200509
  8. LANSOX [Concomitant]
     Active Substance: LANSOPRAZOLE
     Dosage: UNK
  9. BISOPROLOL FUMARATE. [Concomitant]
     Active Substance: BISOPROLOL FUMARATE
     Dosage: 1.25 MILLIGRAM

REACTIONS (2)
  - Nephritis [Unknown]
  - Acute kidney injury [Unknown]

NARRATIVE: CASE EVENT DATE: 20200509
